FAERS Safety Report 18964540 (Version 1)
Quarter: 2021Q1

REPORT INFORMATION
  Report Type: Other
  Country: US (occurrence: US)
  Receive Date: 20210303
  Receipt Date: 20210303
  Transmission Date: 20210420
  Serious: No
  Sender: FDA-Public Use
  Company Number: US-ROCHE-2776685

PATIENT
  Sex: Female

DRUGS (1)
  1. OCREVUS [Suspect]
     Active Substance: OCRELIZUMAB
     Indication: MULTIPLE SCLEROSIS
     Dosage: INFUSE 300 MG IN 250 ML ON DAY 1 AND 15, THEN 600 MG ONCE IN 600 MG ONCE IN 6 MONTHS IN 500 ML.?ON 1
     Route: 065

REACTIONS (1)
  - COVID-19 [Unknown]
